FAERS Safety Report 8045339-6 (Version None)
Quarter: 2012Q1

REPORT INFORMATION
  Report Type: 
  Country: None (occurrence: None)
  Receive Date: 20120113
  Receipt Date: 20120112
  Transmission Date: 20120608
  Serious: No
  Sender: FDA-Public Use
  Company Number: US-B.I. PHARMACEUTICALS,INC./RIDGEFIELD-2012-BP-00730BP

PATIENT
  Sex: Female

DRUGS (10)
  1. PRADAXA [Suspect]
     Indication: EMBOLISM
     Dosage: 300 MG
     Route: 048
     Dates: start: 20110901, end: 20111001
  2. PRADAXA [Suspect]
     Indication: ATRIAL FIBRILLATION
  3. FUROSEMIDE [Concomitant]
     Indication: FLUID RETENTION
     Dosage: 20 MG
     Route: 048
     Dates: start: 19920101
  4. LIPITOR [Concomitant]
     Indication: HYPERCHOLESTEROLAEMIA
     Dosage: 40 MG
     Route: 048
  5. PENTOXIFYLLINE [Concomitant]
     Indication: POOR PERIPHERAL CIRCULATION
     Route: 048
     Dates: start: 19820101
  6. DIOVAN [Concomitant]
     Indication: HYPERTENSION
     Dosage: 160 MG
     Route: 048
     Dates: start: 19920101
  7. COUMADIN [Concomitant]
     Indication: PLATELET AGGREGATION ABNORMAL
     Dosage: 2.5 MG
     Route: 048
     Dates: start: 20110901
  8. COUMADIN [Concomitant]
     Dosage: 5 MG
     Route: 048
     Dates: start: 20110901
  9. ASPIRIN [Concomitant]
     Indication: PROPHYLAXIS
     Dosage: 325 MG
     Route: 048
  10. AMLODIPINE [Concomitant]
     Indication: HYPERTENSION
     Dosage: 2.5 MG
     Route: 048

REACTIONS (3)
  - DYSPEPSIA [None]
  - DIARRHOEA [None]
  - OESOPHAGEAL PAIN [None]
